FAERS Safety Report 14984674 (Version 1)
Quarter: 2018Q2

REPORT INFORMATION
  Report Type: Spontaneous
  Country: US (occurrence: US)
  Receive Date: 20180515
  Receipt Date: 20180515
  Transmission Date: 20180711
  Serious: Yes (Life-Threatening, Hospitalization)
  Sender: FDA-Public Use
  Company Number: None

PATIENT
  Age: 72 Year
  Sex: Male

DRUGS (2)
  1. CEFAZOLIN [Suspect]
     Active Substance: CEFAZOLIN
     Indication: SURGERY
     Dates: start: 20180402, end: 20180402
  2. EPINEPHRINE/LIDOCAINE [Suspect]
     Active Substance: EPINEPHRINE\LIDOCAINE
     Indication: SURGERY
     Dates: start: 20180402, end: 20180402

REACTIONS (1)
  - Anaphylactic reaction [None]

NARRATIVE: CASE EVENT DATE: 20180402
